FAERS Safety Report 9012113 (Version 3)
Quarter: 2013Q1

REPORT INFORMATION
  Report Type: Spontaneous
  Country: AR (occurrence: AR)
  Receive Date: 20130114
  Receipt Date: 20130228
  Transmission Date: 20140127
  Serious: Yes (Hospitalization, Other)
  Sender: FDA-Public Use
  Company Number: AR-ROCHE-1178310

PATIENT
  Sex: Male
  Weight: 130 kg

DRUGS (1)
  1. XOLAIR [Suspect]
     Indication: ASTHMA
     Dosage: 150MG/ 5 AMPOULES
     Route: 058
     Dates: start: 2010, end: 201211

REACTIONS (9)
  - Asthma [Recovering/Resolving]
  - Increased upper airway secretion [Recovering/Resolving]
  - Weight decreased [Unknown]
  - Respiratory disorder [Unknown]
  - Cough [Recovering/Resolving]
  - Drug ineffective [Unknown]
  - Pneumonia [Recovering/Resolving]
  - Pleuritic pain [Recovering/Resolving]
  - Empyema [Recovering/Resolving]
